FAERS Safety Report 18268148 (Version 1)
Quarter: 2020Q3

REPORT INFORMATION
  Report Type: Spontaneous
  Country: US (occurrence: US)
  Receive Date: 20200915
  Receipt Date: 20200915
  Transmission Date: 20201103
  Serious: No
  Sender: FDA-Public Use
  Company Number: US-PFIZER INC-2020351494

PATIENT
  Age: 17 Year
  Sex: Female
  Weight: 54.43 kg

DRUGS (1)
  1. PRISTIQ EXTENDED?RELEASE [Suspect]
     Active Substance: DESVENLAFAXINE SUCCINATE
     Indication: ANXIETY
     Dosage: 50 MG, 1X/DAY
     Route: 048
     Dates: start: 202009

REACTIONS (5)
  - Product use in unapproved indication [Unknown]
  - Dysphagia [Unknown]
  - Mental disorder [Unknown]
  - Off label use [Unknown]
  - Wrong technique in product usage process [Unknown]

NARRATIVE: CASE EVENT DATE: 202009
